FAERS Safety Report 8515613-5 (Version None)
Quarter: 2012Q3

REPORT INFORMATION
  Report Type: 
  Country: None (occurrence: None)
  Receive Date: 20120717
  Receipt Date: 20120711
  Transmission Date: 20120928
  Serious: Yes (Other)
  Sender: FDA-Public Use
  Company Number: PHFR2012GB002262

PATIENT
  Sex: Female

DRUGS (3)
  1. CLOZARIL [Suspect]
     Dosage: 200 MG, UNK
     Route: 048
  2. FLUOXETINE HCL [Suspect]
     Indication: DEPRESSION
     Dosage: 20 MG, UNK
     Route: 048
  3. CLOZARIL [Suspect]
     Indication: SCHIZOPHRENIA
     Route: 048
     Dates: start: 20071012

REACTIONS (5)
  - SARCOIDOSIS [None]
  - LYMPHADENOPATHY MEDIASTINAL [None]
  - TUBERCULOSIS [None]
  - SPLENOMEGALY [None]
  - PLATELET COUNT DECREASED [None]
